FAERS Safety Report 9378240 (Version 1)
Quarter: 2013Q3

REPORT INFORMATION
  Report Type: Spontaneous
  Country: US (occurrence: US)
  Receive Date: 20130701
  Receipt Date: 20130701
  Transmission Date: 20140515
  Serious: No
  Sender: FDA-Public Use
  Company Number: US-US-EMD SERONO, INC.-7153815

PATIENT
  Sex: Female

DRUGS (1)
  1. REBIF [Suspect]
     Indication: MULTIPLE SCLEROSIS
     Route: 058
     Dates: start: 20120719, end: 201210

REACTIONS (4)
  - Cystitis [Recovered/Resolved]
  - Hypoaesthesia oral [Recovered/Resolved]
  - Neck pain [Recovered/Resolved]
  - Multiple sclerosis [Not Recovered/Not Resolved]
